FAERS Safety Report 17670901 (Version 1)
Quarter: 2020Q2

REPORT INFORMATION
  Report Type: Spontaneous
  Country: US (occurrence: US)
  Receive Date: 20200414
  Receipt Date: 20200414
  Transmission Date: 20200713
  Serious: Yes (Hospitalization)
  Sender: FDA-Public Use
  Company Number: None

PATIENT
  Age: 71 Year
  Sex: Male
  Weight: 97.98 kg

DRUGS (2)
  1. DIVALPROEX SODIUM DR [Suspect]
     Active Substance: DIVALPROEX SODIUM
     Indication: COGNITIVE DISORDER
     Route: 048
     Dates: start: 20191206, end: 20191208
  2. DIVALPROEX SODIUM DR [Suspect]
     Active Substance: DIVALPROEX SODIUM
     Indication: DELIRIUM
     Route: 048
     Dates: start: 20191206, end: 20191208

REACTIONS (2)
  - Confusional state [None]
  - Hepatic enzyme increased [None]

NARRATIVE: CASE EVENT DATE: 20191209
